FAERS Safety Report 12494642 (Version 1)
Quarter: 2016Q2

REPORT INFORMATION
  Report Type: Spontaneous
  Country: DE (occurrence: DE)
  Receive Date: 20160624
  Receipt Date: 20160624
  Transmission Date: 20160815
  Serious: Yes (Other)
  Sender: FDA-Public Use
  Company Number: GXKR2016DE002848

PATIENT

DRUGS (1)
  1. MOMETAHEXAL [Suspect]
     Active Substance: MOMETASONE
     Indication: EUSTACHIAN TUBE DISORDER
     Dosage: 2X 50 MG EVERY SECOND DAY
     Route: 065
     Dates: start: 20160603, end: 20160604

REACTIONS (1)
  - Angioedema [Recovering/Resolving]

NARRATIVE: CASE EVENT DATE: 20160604
